FAERS Safety Report 8254910-8 (Version None)
Quarter: 2012Q2

REPORT INFORMATION
  Report Type: 
  Country: None (occurrence: None)
  Receive Date: 20120403
  Receipt Date: 20120330
  Transmission Date: 20120825
  Serious: Yes (Other)
  Sender: FDA-Public Use
  Company Number: US-PFIZER INC-2012081719

PATIENT

DRUGS (1)
  1. CHANTIX [Suspect]
     Dosage: UNK
     Dates: start: 20070101

REACTIONS (5)
  - DEPRESSION [None]
  - NIGHTMARE [None]
  - ANXIETY [None]
  - IRRITABILITY [None]
  - SUICIDAL IDEATION [None]
